FAERS Safety Report 5000815-5 (Version None)
Quarter: 2006Q2

REPORT INFORMATION
  Report Type: 
  Country: None (occurrence: None)
  Receive Date: 20060512
  Receipt Date: 20060302
  Transmission Date: 20061013
  Serious: Yes (Hospitalization)
  Sender: FDA-Public Use
  Company Number: US-MERCK-0603USA00717

PATIENT
  Age: 48 Year
  Sex: Female
  Weight: 68 kg

DRUGS (2)
  1. VIOXX [Suspect]
     Indication: ARTHRITIS
     Route: 048
     Dates: start: 20001001, end: 20040601
  2. VIOXX [Suspect]
     Indication: BURSITIS
     Route: 048
     Dates: start: 20001001, end: 20040601

REACTIONS (1)
  - CEREBROVASCULAR ACCIDENT [None]
